FAERS Safety Report 8041704-1 (Version None)
Quarter: 2012Q1

REPORT INFORMATION
  Report Type: 
  Country: None (occurrence: None)
  Receive Date: 20120112
  Receipt Date: 20120109
  Transmission Date: 20120608
  Serious: Yes (Other)
  Sender: FDA-Public Use
  Company Number: US-JNJFOC-20110609433

PATIENT
  Sex: Female
  Weight: 74.84 kg

DRUGS (17)
  1. DURAGESIC-100 [Suspect]
     Indication: PAIN
     Route: 062
     Dates: start: 19970301
  2. DURAGESIC-100 [Suspect]
     Route: 062
     Dates: start: 20110601
  3. DURAGESIC-100 [Suspect]
     Route: 062
  4. FENTANYL-100 [Suspect]
     Indication: BACK PAIN
     Route: 062
     Dates: end: 20110601
  5. FENTANYL-100 [Suspect]
     Indication: PAIN
     Route: 062
     Dates: end: 20110601
  6. DURAGESIC-100 [Suspect]
     Route: 062
     Dates: end: 20100101
  7. DURAGESIC-100 [Suspect]
     Route: 062
     Dates: end: 20100101
  8. FENTANYL-100 [Suspect]
     Route: 062
     Dates: start: 20100101, end: 20100101
  9. FENTANYL-100 [Suspect]
     Route: 062
     Dates: end: 20110601
  10. DURAGESIC-100 [Suspect]
     Indication: BACK PAIN
     Route: 062
     Dates: start: 19970301
  11. DURAGESIC-100 [Suspect]
     Route: 062
     Dates: start: 20100101, end: 20110101
  12. CATAPRES-TTS-1 [Concomitant]
     Indication: BLOOD PRESSURE
     Route: 065
     Dates: start: 19970301
  13. DURAGESIC-100 [Suspect]
     Route: 062
     Dates: start: 20110601
  14. DURAGESIC-100 [Suspect]
     Route: 062
  15. DURAGESIC-100 [Suspect]
     Route: 062
     Dates: start: 20100101, end: 20110101
  16. FENTANYL-100 [Suspect]
     Indication: PAIN
     Route: 062
     Dates: end: 20110601
  17. FENTANYL-100 [Suspect]
     Indication: BACK PAIN
     Route: 062
     Dates: start: 20100101, end: 20100101

REACTIONS (13)
  - UPPER LIMB FRACTURE [None]
  - SWELLING [None]
  - OEDEMA PERIPHERAL [None]
  - LIMB DISCOMFORT [None]
  - MUSCULOSKELETAL DISORDER [None]
  - MUSCULOSKELETAL STIFFNESS [None]
  - FALL [None]
  - PRODUCT ADHESION ISSUE [None]
  - CEREBROVASCULAR ACCIDENT [None]
  - HEADACHE [None]
  - FEELING HOT [None]
  - VISION BLURRED [None]
  - BLOOD PRESSURE INCREASED [None]
